FAERS Safety Report 6248138-0 (Version None)
Quarter: 2009Q2

REPORT INFORMATION
  Report Type: 
  Country: None (occurrence: None)
  Receive Date: 20090629
  Receipt Date: 20071106
  Transmission Date: 20091009
  Serious: Yes (Other)
  Sender: FDA-Public Use
  Company Number: US-ASTRAZENECA-2006UW20469

PATIENT
  Age: 31 Year
  Sex: Male
  Weight: 97.1 kg

DRUGS (10)
  1. SEROQUEL [Suspect]
     Indication: SCHIZOPHRENIA
     Dosage: 200MG, 300MG
     Route: 048
     Dates: start: 19980101
  2. SEROQUEL [Suspect]
     Route: 048
     Dates: start: 19990601
  3. SEROQUEL [Suspect]
     Dosage: 25MG - 300 MG
     Route: 048
     Dates: start: 20030106
  4. NEXIUM [Concomitant]
     Dates: start: 20051214
  5. LYRICA [Concomitant]
     Dates: start: 20070716
  6. PAXIL [Concomitant]
     Dates: start: 20030101
  7. FLUPHENAZINE DECANOATE [Concomitant]
     Dosage: 37.5 MG EVERY 2 WEEKS
     Route: 058
     Dates: start: 20030303
  8. BUSPAR [Concomitant]
     Dates: start: 20020501
  9. GLYBURIDE [Concomitant]
     Dates: start: 20020215
  10. HYDROXYZINE HCL [Concomitant]
     Route: 048
     Dates: start: 20020208

REACTIONS (4)
  - DIABETIC NEUROPATHY [None]
  - HYPERGLYCAEMIA [None]
  - NEUROPATHY PERIPHERAL [None]
  - TYPE 2 DIABETES MELLITUS [None]
